FAERS Safety Report 18263005 (Version 1)
Quarter: 2020Q3

REPORT INFORMATION
  Report Type: Spontaneous
  Country: GB (occurrence: GB)
  Receive Date: 20200914
  Receipt Date: 20200914
  Transmission Date: 20201103
  Serious: Yes (Other)
  Sender: FDA-Public Use
  Company Number: GB-AKCEA THERAPEUTICS-2020IS001430

PATIENT
  Age: 60 Year
  Sex: Male

DRUGS (2)
  1. TEGSEDI [Suspect]
     Active Substance: INOTERSEN SODIUM
     Indication: HEREDITARY NEUROPATHIC AMYLOIDOSIS
     Route: 058
  2. ISSD (INTEGRATED SYRINGE SAFETY DEVICE) [Suspect]
     Active Substance: DEVICE

REACTIONS (7)
  - Oedema [Not Recovered/Not Resolved]
  - Abdominal pain upper [Not Recovered/Not Resolved]
  - Constipation [Not Recovered/Not Resolved]
  - Loss of control of legs [Unknown]
  - Fluid retention [Not Recovered/Not Resolved]
  - Fall [Unknown]
  - Wound [Unknown]

NARRATIVE: CASE EVENT DATE: 20200829
